FAERS Safety Report 15920158 (Version 5)
Quarter: 2022Q1

REPORT INFORMATION
  Report Type: Spontaneous
  Country: JP (occurrence: JP)
  Receive Date: 20190205
  Receipt Date: 20220330
  Transmission Date: 20220423
  Serious: Yes (Hospitalization)
  Sender: FDA-Public Use
  Company Number: JP-PFIZER INC-2019047029

PATIENT
  Age: 56 Year
  Sex: Female
  Weight: 59 kg

DRUGS (5)
  1. AMLODIPINE BESYLATE [Suspect]
     Active Substance: AMLODIPINE BESYLATE
     Indication: Hypertension
     Dosage: 10 MG, 1X/DAY
     Route: 048
  2. METFORMIN HYDROCHLORIDE [Suspect]
     Active Substance: METFORMIN HYDROCHLORIDE
     Indication: Type 2 diabetes mellitus
     Dosage: 250 MG, 3X/DAY
     Route: 048
  3. LINAGLIPTIN [Concomitant]
     Active Substance: LINAGLIPTIN
     Dosage: 1 DF, 1X/DAY
  4. IBUPROFEN [Concomitant]
     Active Substance: IBUPROFEN
     Indication: Pain
     Dosage: 200 MG, 3X/DAY
  5. LANSOPRAZOLE [Concomitant]
     Active Substance: LANSOPRAZOLE
     Dosage: 15 MG, 1X/DAY  (TABLET)

REACTIONS (5)
  - Lung neoplasm malignant [Unknown]
  - Neutropenia [Unknown]
  - Dysphonia [Unknown]
  - Gastrooesophageal reflux disease [Unknown]
  - Chest pain [Unknown]
